FAERS Safety Report 18208062 (Version 1)
Quarter: 2020Q3

REPORT INFORMATION
  Report Type: Spontaneous
  Country: PT (occurrence: PT)
  Receive Date: 20200828
  Receipt Date: 20200828
  Transmission Date: 20201103
  Serious: Yes (Death, Hospitalization)
  Sender: FDA-Public Use
  Company Number: PT-PFIZER INC-2020332910

PATIENT
  Age: 64 Year
  Sex: Male

DRUGS (11)
  1. MAPROTILINE [Concomitant]
     Active Substance: MAPROTILINE
     Dosage: 25 MG, 1X/DAY
     Route: 048
  2. SUNITINIB MALATE. [Suspect]
     Active Substance: SUNITINIB MALATE
     Indication: PAPILLARY RENAL CELL CARCINOMA
     Dosage: 50 MG, 1X/DAY
     Route: 048
     Dates: start: 20200406, end: 20200529
  3. FENTANYL. [Concomitant]
     Active Substance: FENTANYL
     Dosage: 600 UG, AS NEEDED (1 TABLET AS NEEDED IF PAIN, UP TO 4/4 HOURS)
     Route: 060
  4. AMLODIPINE [Concomitant]
     Active Substance: AMLODIPINE BESYLATE
     Dosage: 5 MG, 1X/DAY
     Route: 048
  5. RABEPRAZOLE [Concomitant]
     Active Substance: RABEPRAZOLE
     Dosage: 20 MG, 1X/DAY
     Route: 048
  6. FUROSEMIDE. [Concomitant]
     Active Substance: FUROSEMIDE
     Dosage: 40 MG, 1X/DAY
     Route: 048
  7. FENTANYL. [Concomitant]
     Active Substance: FENTANYL
     Dosage: 25 UG EVERY 72H
     Route: 062
  8. METOCLOPRAMIDE. [Concomitant]
     Active Substance: METOCLOPRAMIDE
     Dosage: 30 MG, 1X/DAY
     Route: 048
  9. CLOXAZOLAM [Concomitant]
     Active Substance: CLOXAZOLAM
     Dosage: 1 MG, 1X/DAY
     Route: 048
  10. BISOPROLOL [Concomitant]
     Active Substance: BISOPROLOL
     Dosage: 5 MG, 1X/DAY
     Route: 048
  11. FLUVASTATIN [Concomitant]
     Active Substance: FLUVASTATIN SODIUM
     Dosage: 80 MG, 1X/DAY
     Route: 048

REACTIONS (2)
  - Pneumoperitoneum [Fatal]
  - Peritonitis [Fatal]

NARRATIVE: CASE EVENT DATE: 20200529
